FAERS Safety Report 5352075-3 (Version None)
Quarter: 2007Q2

REPORT INFORMATION
  Report Type: 
  Country: None (occurrence: None)
  Receive Date: 20070611
  Receipt Date: 20070606
  Transmission Date: 20071010
  Serious: Yes (Hospitalization)
  Sender: FDA-Public Use
  Company Number: DE-BRISTOL-MYERS SQUIBB COMPANY-13805536

PATIENT
  Age: 72 Year
  Sex: Female
  Weight: 70 kg

DRUGS (5)
  1. COAPROVEL [Suspect]
     Indication: HYPERTENSION
     Route: 048
     Dates: start: 20070307
  2. AMLOBETA [Suspect]
     Indication: HYPERTENSION
     Route: 048
     Dates: start: 20070307
  3. ZOLEDRONIC ACID [Concomitant]
     Indication: OSTEOPOROSIS
     Route: 048
     Dates: start: 20070307
  4. CALCIUM CHLORIDE [Concomitant]
  5. VITAMIN D [Concomitant]

REACTIONS (1)
  - CIRCULATORY COLLAPSE [None]
